FAERS Safety Report 7915289-1 (Version None)
Quarter: 2011Q4

REPORT INFORMATION
  Report Type: 
  Country: None (occurrence: None)
  Receive Date: 20111115
  Receipt Date: 20111108
  Transmission Date: 20120403
  Serious: Yes (Hospitalization)
  Sender: FDA-Public Use
  Company Number: US-TEVA-252917USA

PATIENT
  Sex: Male

DRUGS (9)
  1. ATENOLOL [Concomitant]
     Indication: HYPERTENSION
     Dosage: 50 MILLIGRAM;
     Route: 048
     Dates: start: 20000101
  2. EZETIMIBE [Concomitant]
     Indication: HYPERLIPIDAEMIA
     Dosage: 40 MILLIGRAM;
     Route: 048
     Dates: start: 20000101
  3. ABIRATERONE ACETATE [Suspect]
     Indication: PROSTATE CANCER METASTATIC
     Dosage: 1000 MILLIGRAM;
     Route: 048
     Dates: start: 20081118
  4. WARFARIN SODIUM [Concomitant]
     Indication: ANTICOAGULANT THERAPY
     Dosage: 6 MILLIGRAM;
     Route: 048
     Dates: start: 20040101
  5. PREDNISOLONE [Suspect]
     Indication: PROSTATE CANCER METASTATIC
     Dosage: 10 MILLIGRAM;
     Route: 048
     Dates: start: 20081118
  6. LEVOTHYROXINE SODIUM [Concomitant]
     Indication: HYPOTHYROIDISM
     Dosage: 50 MILLIGRAM;
     Route: 048
     Dates: start: 20030101
  7. BENAZEPRIL HYDROCHLORIDE [Concomitant]
     Indication: HYPERTENSION
     Dosage: 50 MILLIGRAM;
     Route: 048
     Dates: start: 20000101
  8. ZOLEDRONIC ACID [Concomitant]
     Indication: METASTASIS
     Route: 042
     Dates: start: 20080401
  9. TOLTERODINE TARTRATE [Concomitant]
     Indication: URINARY INCONTINENCE
     Dosage: 4 MILLIGRAM;
     Route: 048
     Dates: start: 20080101

REACTIONS (1)
  - DIVERTICULITIS [None]
